FAERS Safety Report 4732980-9 (Version None)
Quarter: 2005Q3

REPORT INFORMATION
  Report Type: 
  Country: None (occurrence: None)
  Receive Date: 20050725
  Receipt Date: 20040527
  Transmission Date: 20060218
  Serious: Yes (Other)
  Sender: FDA-Public Use
  Company Number: WAES 0405USA02105

PATIENT
  Age: 73 Year
  Sex: Female

DRUGS (6)
  1. VIOXX [Suspect]
     Indication: ARTHRALGIA
     Dosage: 25 MG/BID/PO
     Route: 048
     Dates: start: 20040511, end: 20040517
  2. VIOXX [Suspect]
     Indication: PAIN IN EXTREMITY
     Dosage: 25 MG/BID/PO
     Route: 048
     Dates: start: 20040511, end: 20040517
  3. PRINIVIL [Concomitant]
  4. ZOCOR [Concomitant]
  5. CALCIUM GLUCONATE [Concomitant]
  6. VITAMINS [Concomitant]

REACTIONS (2)
  - BLOOD PRESSURE INCREASED [None]
  - HEADACHE [None]
